FAERS Safety Report 24264477 (Version 1)
Quarter: 2024Q3

REPORT INFORMATION
  Report Type: Report from Study
  Country: KR (occurrence: US)
  Receive Date: 20240829
  Receipt Date: 20240829
  Transmission Date: 20241017
  Serious: Yes (Other)
  Sender: JOHNSON AND JOHNSON
  Company Number: KR-JNJFOC-20240850087

PATIENT

DRUGS (2)
  1. STELARA [Suspect]
     Active Substance: USTEKINUMAB
     Indication: Crohn^s disease
     Dosage: 260 MG FOR LSSEQL55 KG, 390 MG FOR }55 KG TO LSSEQL85 KG, AND 520 MG FOR THOSE }85 KG.
     Route: 040
  2. STELARA [Suspect]
     Active Substance: USTEKINUMAB
     Route: 058

REACTIONS (12)
  - Anaemia [Unknown]
  - Hepatic enzyme increased [Unknown]
  - Adverse event [Unknown]
  - Sepsis [Unknown]
  - Abdominal pain [Unknown]
  - Dizziness [Unknown]
  - Abdominal discomfort [Unknown]
  - Pyrexia [Unknown]
  - Abscess [Unknown]
  - Folliculitis [Unknown]
  - Upper respiratory tract infection [Unknown]
  - Vaginal infection [Unknown]
